FAERS Safety Report 8510457-2 (Version None)
Quarter: 2012Q3

REPORT INFORMATION
  Report Type: 
  Country: None (occurrence: None)
  Receive Date: 20120715
  Receipt Date: 20120705
  Transmission Date: 20120928
  Serious: Yes (Other)
  Sender: FDA-Public Use
  Company Number: CH-TEVA-342904ISR

PATIENT
  Age: 58 Year
  Sex: Female

DRUGS (5)
  1. ACTIQ [Suspect]
     Indication: PAIN
     Dosage: 600 MICROGRAM;
     Route: 002
     Dates: start: 20120410
  2. METHOTREXATE SODIUM [Suspect]
     Indication: POLYARTHRITIS
     Dosage: 2.8571 MILLIGRAM;
     Route: 058
     Dates: start: 20100726
  3. SIMVASTATIN [Suspect]
     Dosage: 20 MILLIGRAM;
     Route: 048
     Dates: start: 20101028
  4. VOLTAREN [Suspect]
     Indication: PAIN
     Dosage: 100 MILLIGRAM;
     Route: 048
     Dates: start: 19780101
  5. CALCIMAGON [Suspect]
     Dosage: 500 MILLIGRAM;
     Route: 048
     Dates: start: 20120225

REACTIONS (3)
  - OFF LABEL USE [None]
  - WEIGHT DECREASED [None]
  - DIARRHOEA [None]
